FAERS Safety Report 7479900-4 (Version None)
Quarter: 2011Q2

REPORT INFORMATION
  Report Type: 
  Country: None (occurrence: None)
  Receive Date: 20110516
  Receipt Date: 20110512
  Transmission Date: 20111010
  Serious: Yes (Hospitalization)
  Sender: FDA-Public Use
  Company Number: FR-BRISTOL-MYERS SQUIBB COMPANY-15641467

PATIENT
  Age: 27 Year
  Sex: Male
  Weight: 70 kg

DRUGS (1)
  1. YERVOY [Suspect]
     Indication: MALIGNANT MELANOMA
     Dosage: NO OF INF:3;2ND INF:0C62102.0J/0C62102.0M 3RD INF:0C62102.0M
     Route: 042

REACTIONS (1)
  - LIPASE INCREASED [None]
